FAERS Safety Report 9745474 (Version 3)
Quarter: 2014Q1

REPORT INFORMATION
  Report Type: Spontaneous
  Country: AU (occurrence: AU)
  Receive Date: 20131211
  Receipt Date: 20140114
  Transmission Date: 20141002
  Serious: Yes (Other)
  Sender: FDA-Public Use
  Company Number: AU-PFIZER INC-2013275842

PATIENT
  Age: 30 Year
  Sex: Female

DRUGS (2)
  1. LYRICA [Suspect]
     Indication: RADICULOPATHY
     Dosage: 75 MG, TWICE DAILY
     Route: 048
     Dates: start: 20130826
  2. LYRICA [Suspect]
     Indication: PAIN
     Dosage: 150 MG, 2X/DAY
     Route: 048
     Dates: start: 20130917, end: 20130924

REACTIONS (13)
  - Muscular weakness [Recovered/Resolved]
  - Mobility decreased [Recovered/Resolved]
  - Peroneal nerve palsy [Recovered/Resolved]
  - Diplopia [Recovered/Resolved]
  - Gait disturbance [Recovered/Resolved]
  - Joint range of motion decreased [Recovered/Resolved]
  - Drug ineffective [Unknown]
  - Vision blurred [Recovered/Resolved]
  - Dizziness [Recovered/Resolved]
  - Somnolence [Recovered/Resolved]
  - Disturbance in attention [Recovered/Resolved]
  - Memory impairment [Recovered/Resolved]
  - Tremor [Recovered/Resolved]
